FAERS Safety Report 6170879-4 (Version None)
Quarter: 2009Q2

REPORT INFORMATION
  Report Type: 
  Country: None (occurrence: None)
  Receive Date: 20090427
  Receipt Date: 20090413
  Transmission Date: 20091009
  Serious: No
  Sender: FDA-Public Use
  Company Number: SP1200900077

PATIENT
  Age: 9 Year
  Sex: Female
  Weight: 40.8 kg

DRUGS (8)
  1. AMITIZA [Suspect]
     Indication: IRRITABLE BOWEL SYNDROME
     Dosage: 24 MCG, BID, ORAL, 24 MCG, QD, ORAL, 24 MCG, BID, ORAL, 8 MCG, BID, ORAL
     Route: 048
     Dates: start: 20090206, end: 20090227
  2. AMITIZA [Suspect]
     Indication: IRRITABLE BOWEL SYNDROME
     Dosage: 24 MCG, BID, ORAL, 24 MCG, QD, ORAL, 24 MCG, BID, ORAL, 8 MCG, BID, ORAL
     Route: 048
     Dates: start: 20090218
  3. AMITIZA [Suspect]
     Indication: IRRITABLE BOWEL SYNDROME
     Dosage: 24 MCG, BID, ORAL, 24 MCG, QD, ORAL, 24 MCG, BID, ORAL, 8 MCG, BID, ORAL
     Route: 048
     Dates: start: 20090222
  4. AMITIZA [Suspect]
     Indication: IRRITABLE BOWEL SYNDROME
     Dosage: 24 MCG, BID, ORAL, 24 MCG, QD, ORAL, 24 MCG, BID, ORAL, 8 MCG, BID, ORAL
     Route: 048
     Dates: start: 20090224
  5. BELLADONNA [Concomitant]
  6. MIRALAX [Concomitant]
  7. PRILOSEC [Concomitant]
  8. PREVACID [Concomitant]

REACTIONS (13)
  - ABDOMINAL PAIN [None]
  - ASTHENIA [None]
  - CHEST DISCOMFORT [None]
  - CHEST PAIN [None]
  - DRUG INEFFECTIVE [None]
  - DYSPEPSIA [None]
  - FREQUENT BOWEL MOVEMENTS [None]
  - LACTOSE INTOLERANCE [None]
  - MUSCLE SPASMS [None]
  - NAUSEA [None]
  - OFF LABEL USE [None]
  - TERMINAL INSOMNIA [None]
  - THERAPY REGIMEN CHANGED [None]
